FAERS Safety Report 8139260-2 (Version None)
Quarter: 2012Q1

REPORT INFORMATION
  Report Type: 
  Country: None (occurrence: None)
  Receive Date: 20120215
  Receipt Date: 20120206
  Transmission Date: 20120608
  Serious: Yes (Other)
  Sender: FDA-Public Use
  Company Number: CA-B.I. PHARMACEUTICALS,INC./RIDGEFIELD-2012-CN-00189CN

PATIENT
  Age: 26 Year
  Sex: Female

DRUGS (6)
  1. TIPRANAVIR + RITONAVIR CO-ADMIN [Suspect]
     Route: 065
  2. PREZISTA [Suspect]
     Route: 065
  3. ZIAGEN [Suspect]
     Route: 065
  4. NORVIR [Suspect]
     Route: 065
  5. TELZIR [Suspect]
     Route: 065
  6. ZERIT [Suspect]

REACTIONS (8)
  - NIGHTMARE [None]
  - NAUSEA [None]
  - HEADACHE [None]
  - FATIGUE [None]
  - RASH [None]
  - DEPRESSION [None]
  - DIARRHOEA [None]
  - LIVER DISORDER [None]
